FAERS Safety Report 6313740-4 (Version None)
Quarter: 2009Q3

REPORT INFORMATION
  Report Type: 
  Country: None (occurrence: None)
  Receive Date: 20090814
  Receipt Date: 20090805
  Transmission Date: 20100115
  Serious: Yes (Hospitalization)
  Sender: FDA-Public Use
  Company Number: 2009SP017769

PATIENT
  Age: 75 Year
  Sex: Male

DRUGS (6)
  1. AVANZA (MIRTAZAPINE) (MIRTAZAPINE) [Suspect]
     Indication: DEPRESSION
     Dates: start: 20090305, end: 20090309
  2. KLACID HP7 (KLACID HP7) [Suspect]
     Indication: DRUG USE FOR UNKNOWN INDICATION
     Dates: start: 20090304, end: 20090309
  3. CLONAZEPAM [Concomitant]
  4. PAROXETINE HCL [Concomitant]
  5. HYDROCHLORIDE [Concomitant]
  6. LEVOTHYROXINE SODIUM [Concomitant]

REACTIONS (7)
  - AGGRESSION [None]
  - AGITATION [None]
  - FATIGUE [None]
  - FRUSTRATION [None]
  - HEADACHE [None]
  - INSOMNIA [None]
  - SUICIDAL IDEATION [None]
